FAERS Safety Report 12736616 (Version 2)
Quarter: 2016Q3

REPORT INFORMATION
  Report Type: Report from Study
  Country: US (occurrence: US)
  Receive Date: 20160912
  Receipt Date: 20160923
  Transmission Date: 20161109
  Serious: Yes (Other)
  Sender: FDA-Public Use
  Company Number: US-PFIZER INC-2016415943

PATIENT
  Age: 13 Year
  Sex: Male
  Weight: 48.35 kg

DRUGS (16)
  1. PF-02341066 [Suspect]
     Active Substance: CRIZOTINIB
     Indication: ANAPLASTIC LARGE CELL LYMPHOMA T- AND NULL-CELL TYPES
     Dosage: 165 MG/M2, COURSE A: CYCLES 1, 3 AND 5 (CYCLE= 21 DAYS), BID ON DAYS 1-21
     Route: 048
     Dates: start: 20160328
  2. METHOTREXATE SODIUM. [Suspect]
     Active Substance: METHOTREXATE SODIUM
     Dosage: 3000 MG/M2, COURSE B: CYCLES 2, 4 AND 6 (CYCLE= 21 DAYS), IV OVER 3 HOURS ON DAY 1
     Route: 042
  3. CYCLOPHOSPHAMIDE. [Suspect]
     Active Substance: CYCLOPHOSPHAMIDE
     Dosage: 200 MG/M2, COURSE B: CYCLES 2, 4 AND 6 (CYCLE= 21 DAYS), IV OVER 15-30 MINUTES ON DAYS 1-5
     Route: 042
  4. DEXAMETHASONE. [Suspect]
     Active Substance: DEXAMETHASONE
     Dosage: PROPHASE (CYCLE = 5 DAYS), 5MG/M2 BID ON DAYS 3-5
     Route: 048
  5. DEXAMETHASONE. [Suspect]
     Active Substance: DEXAMETHASONE
     Dosage: 5 MG/M2, COURSE B: CYCLES 2, 4 AND 6 (CYCLE= 21 DAYS), BID ON DAYS 1-5
     Route: 048
  6. METHOTREXATE SODIUM. [Suspect]
     Active Substance: METHOTREXATE SODIUM
     Indication: ANAPLASTIC LARGE CELL LYMPHOMA T- AND NULL-CELL TYPES
     Dosage: PROPHASE (CYCLE = 5 DAYS), 7.5-12MG IT ON DAY 1 (AGE BASED DOSING)
     Route: 037
  7. DOXORUBICIN HCL [Suspect]
     Active Substance: DOXORUBICIN HYDROCHLORIDE
     Indication: ANAPLASTIC LARGE CELL LYMPHOMA T- AND NULL-CELL TYPES
     Dosage: 25 MG/M2, COURSE B: CYCLES 2, 4 AND 6 (CYCLE= 21 DAYS),  IV OVER 1-15 MIN ON DAYS 4 AND 5
     Route: 042
  8. CYTARABINE. [Suspect]
     Active Substance: CYTARABINE
     Dosage: 150 MG/M2, COURSE A: CYCLES 1, 3 AND 5,  IV OVER 1-30 MINUTES Q12 HOURS ON DAYS 4 AND 5
     Route: 042
     Dates: start: 20160328
  9. CYCLOPHOSPHAMIDE. [Suspect]
     Active Substance: CYCLOPHOSPHAMIDE
     Indication: ANAPLASTIC LARGE CELL LYMPHOMA T- AND NULL-CELL TYPES
     Dosage: 200 MG/M2, PROPHASE (CYCLE = 5 DAYS), OVER 15-30 MINUTES ON DAYS 1 AND 2
     Route: 042
  10. IFOSFAMIDE. [Suspect]
     Active Substance: IFOSFAMIDE
     Indication: ANAPLASTIC LARGE CELL LYMPHOMA T- AND NULL-CELL TYPES
     Dosage: 800 MG/M2, COURSE A: CYCLES 1, 3 AND 5 (CYCLE= 21 DAYS),  IV OVER 60 MIN ON DAYS 1-5
     Route: 042
     Dates: start: 20160328
  11. DEXAMETHASONE. [Suspect]
     Active Substance: DEXAMETHASONE
     Indication: ANAPLASTIC LARGE CELL LYMPHOMA T- AND NULL-CELL TYPES
     Dosage: PROPHASE (CYCLE = 5 DAYS), 5MG/M2 QD ON DAYS 1-2
     Route: 048
  12. DEXAMETHASONE. [Suspect]
     Active Substance: DEXAMETHASONE
     Dosage: 5 MG/M2, COURSE A: CYCLES 1, 3 AND 5 (CYCLE= 21 DAYS), BID ON DAYS 1-5
     Route: 048
     Dates: start: 20160328
  13. VP-16 [Suspect]
     Active Substance: ETOPOSIDE
     Indication: ANAPLASTIC LARGE CELL LYMPHOMA T- AND NULL-CELL TYPES
     Dosage: 100 MG/M2, COURSE A: CYCLES 1, 3 AND 5 (CYCLE= 21 DAYS), IV OVER 2 HOURS ON DAYS 4 AND 5
     Route: 042
     Dates: start: 20160328
  14. CYTARABINE. [Suspect]
     Active Substance: CYTARABINE
     Indication: ANAPLASTIC LARGE CELL LYMPHOMA T- AND NULL-CELL TYPES
     Dosage: 15-24MG, PROPHASE (CYCLE = 5 DAYS), 15-24MG ON DAY 1 (AGE BASED DOSING)
     Route: 037
  15. PF-02341066 [Suspect]
     Active Substance: CRIZOTINIB
     Dosage: 165 MG/M2, COURSE B: CYCLES 2, 4 AND 6 (CYCLE= 21 DAYS), BID ON DAYS 1-21
     Route: 048
  16. METHOTREXATE SODIUM. [Suspect]
     Active Substance: METHOTREXATE SODIUM
     Dosage: 3000 MG/M2, COURSE A: CYCLES 1, 3 AND 5 (CYCLE= 21 DAYS), IV OVER 3 HOURS ON DAY 1
     Route: 042
     Dates: start: 20160328

REACTIONS (1)
  - Vascular access complication [Unknown]

NARRATIVE: CASE EVENT DATE: 20160718
